FAERS Safety Report 26070625 (Version 1)
Quarter: 2025Q4

REPORT INFORMATION
  Report Type: Spontaneous
  Country: MA (occurrence: MA)
  Receive Date: 20251120
  Receipt Date: 20251120
  Transmission Date: 20260118
  Serious: Yes (Other)
  Sender: PFIZER
  Company Number: MA-PFIZER INC-PV202500135449

PATIENT
  Sex: Female

DRUGS (2)
  1. LORLATINIB [Suspect]
     Active Substance: LORLATINIB
     Indication: Non-small cell lung cancer metastatic
     Dosage: 100 MG, DAILY
  2. LORLATINIB [Suspect]
     Active Substance: LORLATINIB
     Indication: Metastases to central nervous system

REACTIONS (2)
  - Thrombosis [Recovered/Resolved]
  - Dyslipidaemia [Recovered/Resolved]
